FAERS Safety Report 22073921 (Version 1)
Quarter: 2023Q1

REPORT INFORMATION
  Report Type: Spontaneous
  Country: FR (occurrence: FR)
  Receive Date: 20230308
  Receipt Date: 20230308
  Transmission Date: 20230417
  Serious: Yes (Death)
  Sender: FDA-Public Use
  Company Number: None

PATIENT
  Age: 77 Year
  Sex: Male

DRUGS (1)
  1. GADOBUTROL [Suspect]
     Active Substance: GADOBUTROL
     Indication: Magnetic resonance imaging
     Route: 042
     Dates: start: 20170505, end: 20170505

REACTIONS (6)
  - Nausea [Fatal]
  - Vomiting [Fatal]
  - Acute pulmonary oedema [Fatal]
  - Dyspnoea [Fatal]
  - Diarrhoea [Fatal]
  - Shock [Fatal]

NARRATIVE: CASE EVENT DATE: 20170505
